FAERS Safety Report 15048781 (Version 1)
Quarter: 2018Q2

REPORT INFORMATION
  Report Type: Spontaneous
  Country: DE (occurrence: DE)
  Receive Date: 20180622
  Receipt Date: 20180622
  Transmission Date: 20180711
  Serious: Yes (Other)
  Sender: FDA-Public Use
  Company Number: DE-ASTRAZENECA-2018SE78413

PATIENT
  Age: 38 Year
  Sex: Female
  Weight: 80 kg

DRUGS (9)
  1. TAVOR [Concomitant]
     Indication: OBSESSIVE-COMPULSIVE DISORDER
     Dosage: 5 [MG/D ]/ 3-5 MG/D
     Route: 048
  2. JODTHYROX [Concomitant]
     Active Substance: LEVOTHYROXINE SODIUM\POTASSIUM IODIDE
     Indication: HYPOTHYROIDISM
     Dosage: 25 [???G/D ] / 25 [???G/D ]/ 12.5 - 25 ???G/D
     Route: 048
     Dates: start: 20170128, end: 20171030
  3. FEMIBION (NEM) [Concomitant]
     Indication: PROPHYLAXIS OF NEURAL TUBE DEFECT
     Route: 048
  4. RISPERIDONE. [Suspect]
     Active Substance: RISPERIDONE
     Indication: OBSESSIVE-COMPULSIVE DISORDER
     Route: 048
  5. HUMINSULIN BASAL [Concomitant]
     Active Substance: INSULIN NOS
     Indication: GESTATIONAL DIABETES
     Route: 058
  6. CITALOPRAM [Concomitant]
     Active Substance: CITALOPRAM HYDROBROMIDE
     Indication: OBSESSIVE-COMPULSIVE DISORDER
     Dosage: 60 [MG/D ]
     Route: 048
     Dates: start: 20170128, end: 20171030
  7. DIAZEPAM. [Concomitant]
     Active Substance: DIAZEPAM
     Indication: OBSESSIVE-COMPULSIVE DISORDER
     Route: 048
  8. QUETIAPINE FUMARATE. [Suspect]
     Active Substance: QUETIAPINE FUMARATE
     Indication: OBSESSIVE-COMPULSIVE DISORDER
     Route: 048
  9. QUETIAPINE FUMARATE. [Suspect]
     Active Substance: QUETIAPINE FUMARATE
     Indication: OBSESSIVE-COMPULSIVE DISORDER
     Route: 048

REACTIONS (1)
  - Gestational diabetes [Recovered/Resolved]
